FAERS Safety Report 5298467-2 (Version None)
Quarter: 2007Q2

REPORT INFORMATION
  Report Type: 
  Country: None (occurrence: None)
  Receive Date: 20070409
  Receipt Date: 20070327
  Transmission Date: 20071010
  Serious: Yes (Other)
  Sender: FDA-Public Use
  Company Number: 2007S1000144

PATIENT
  Sex: Female

DRUGS (1)
  1. CUBICIN [Suspect]
     Indication: ARTHRITIS BACTERIAL

REACTIONS (5)
  - ENDOPHTHALMITIS [None]
  - IRITIS [None]
  - OCULAR DISCOMFORT [None]
  - STAPHYLOCOCCAL BACTERAEMIA [None]
  - VISION BLURRED [None]
